FAERS Safety Report 9695487 (Version 1)
Quarter: 2013Q4

REPORT INFORMATION
  Report Type: Spontaneous
  Country: CN (occurrence: CN)
  Receive Date: 20131119
  Receipt Date: 20131119
  Transmission Date: 20140711
  Serious: Yes (Other)
  Sender: FDA-Public Use
  Company Number: CN-JNJFOC-20131107563

PATIENT
  Age: 25 Year
  Sex: Male

DRUGS (2)
  1. REMICADE [Suspect]
     Indication: ANKYLOSING SPONDYLITIS
     Route: 042
     Dates: start: 2011
  2. REMICADE [Suspect]
     Indication: ANKYLOSING SPONDYLITIS
     Route: 042
     Dates: start: 20131111, end: 20131111

REACTIONS (4)
  - Chest discomfort [Recovered/Resolved]
  - Sensation of foreign body [Recovered/Resolved]
  - Laryngeal oedema [Recovered/Resolved]
  - Infusion related reaction [Recovered/Resolved]
